FAERS Safety Report 6032559-5 (Version None)
Quarter: 2009Q1

REPORT INFORMATION
  Report Type: 
  Country: None (occurrence: None)
  Receive Date: 20090109
  Receipt Date: 20090105
  Transmission Date: 20090719
  Serious: Yes (Other)
  Sender: FDA-Public Use
  Company Number: US-BAYER-200910023BCC

PATIENT
  Sex: Female

DRUGS (2)
  1. ASPIRIN [Suspect]
     Indication: ANALGESIA
     Dates: start: 19680101
  2. ONE A DAY ESSENTIAL [Concomitant]
     Dates: start: 20010101

REACTIONS (1)
  - ULCER HAEMORRHAGE [None]
